FAERS Safety Report 15474207 (Version 3)
Quarter: 2018Q4

REPORT INFORMATION
  Report Type: Spontaneous
  Country: US (occurrence: US)
  Receive Date: 20181008
  Receipt Date: 20181217
  Transmission Date: 20190205
  Serious: Yes (Other)
  Sender: FDA-Public Use
  Company Number: US-SA-2018SA275877

PATIENT
  Age: 43 Year
  Sex: Female
  Weight: 65.76 kg

DRUGS (4)
  1. TAXOTERE [Suspect]
     Active Substance: DOCETAXEL
     Dosage: 136 MG, Q3W
     Route: 042
     Dates: start: 20090513, end: 20090513
  2. TAXOTERE [Suspect]
     Active Substance: DOCETAXEL
     Indication: BREAST CANCER FEMALE
     Dosage: 136 MG, Q3W
     Route: 042
     Dates: start: 20090330, end: 20090330
  3. CYTOXAN [Concomitant]
     Active Substance: CYCLOPHOSPHAMIDE
     Dosage: 1066 MG, UNK
  4. NEOSAR [Concomitant]
     Active Substance: CYCLOPHOSPHAMIDE

REACTIONS (2)
  - Psychological trauma [Unknown]
  - Alopecia [Recovering/Resolving]

NARRATIVE: CASE EVENT DATE: 20090501
